FAERS Safety Report 6419398-8 (Version None)
Quarter: 2009Q4

REPORT INFORMATION
  Report Type: 
  Country: None (occurrence: None)
  Receive Date: 20091013
  Receipt Date: 20090618
  Transmission Date: 20100525
  Serious: Yes (Other)
  Sender: FDA-Public Use
  Company Number: S07-USA-06169-01

PATIENT
  Age: 26 Year
  Sex: Male

DRUGS (3)
  1. LEXAPRO [Suspect]
     Indication: ANXIETY
     Dosage: 40 MG (40 MG, 1 IN 1 D), ORAL
     Route: 048
     Dates: start: 20071001, end: 20070101
  2. LEXAPRO [Suspect]
     Indication: DEPRESSION
     Dosage: 40 MG (40 MG, 1 IN 1 D), ORAL
     Route: 048
     Dates: start: 20071001, end: 20070101
  3. WELLBUTRIN [Concomitant]

REACTIONS (8)
  - AKATHISIA [None]
  - ANXIETY [None]
  - DEPRESSION [None]
  - OVERDOSE [None]
  - PARAESTHESIA [None]
  - SLEEP DISORDER [None]
  - SUICIDAL IDEATION [None]
  - TREMOR [None]
